FAERS Safety Report 14241219 (Version 2)
Quarter: 2017Q4

REPORT INFORMATION
  Report Type: Spontaneous
  Country: CH (occurrence: CH)
  Receive Date: 20171130
  Receipt Date: 20171204
  Transmission Date: 20180321
  Serious: Yes (Hospitalization, Other)
  Sender: FDA-Public Use
  Company Number: CH-BRISTOL-MYERS SQUIBB COMPANY-BMS-2017-105802

PATIENT
  Age: 92 Year
  Sex: Male

DRUGS (35)
  1. ELIQUIS [Suspect]
     Active Substance: APIXABAN
     Indication: CEREBROVASCULAR ACCIDENT PROPHYLAXIS
     Dosage: UNK
     Route: 048
     Dates: start: 20171016
  2. COVERSUM [Suspect]
     Active Substance: PERINDOPRIL
     Indication: CEREBROVASCULAR ACCIDENT
     Dosage: 2.5 MG, QD
     Route: 048
     Dates: start: 20171014, end: 20171018
  3. PRADIF [Concomitant]
     Active Substance: TAMSULOSIN HYDROCHLORIDE
     Indication: BENIGN PROSTATIC HYPERPLASIA
     Dosage: 400 MG, QD
     Route: 065
  4. ASPEGIC                            /00002701/ [Concomitant]
     Indication: CEREBROVASCULAR ACCIDENT
     Dosage: 250 MG, UNK
     Route: 065
     Dates: start: 20171012, end: 20171016
  5. BECOZYME                           /00003501/ [Concomitant]
     Active Substance: CALCIUM PANTOTHENATE\NIACINAMIDE\PYRIDOXINE HYDROCHLORIDE\RIBOFLAVIN\THIAMINE HYDROCHLORIDE
     Indication: CONSTIPATION
     Route: 065
  6. FOLIC ACID. [Concomitant]
     Active Substance: FOLIC ACID
     Indication: CONSTIPATION
     Route: 065
  7. ASPEGIC                            /00002701/ [Concomitant]
     Indication: HYPERTENSION
     Dosage: 100 MG, QD
     Route: 065
     Dates: start: 20171012, end: 20171016
  8. BECOZYME                           /00003501/ [Concomitant]
     Active Substance: CALCIUM PANTOTHENATE\NIACINAMIDE\PYRIDOXINE HYDROCHLORIDE\RIBOFLAVIN\THIAMINE HYDROCHLORIDE
     Indication: ALCOHOLISM
     Dosage: UNK
     Route: 065
     Dates: start: 20171012
  9. VITAMIN D3 [Concomitant]
     Active Substance: CHOLECALCIFEROL
     Indication: INSOMNIA
     Route: 065
  10. LAXOBERON [Concomitant]
     Active Substance: SODIUM PICOSULFATE
     Indication: INSOMNIA
     Route: 065
  11. CORDARONE [Suspect]
     Active Substance: AMIODARONE HYDROCHLORIDE
     Indication: PRODUCT USED FOR UNKNOWN INDICATION
     Dosage: 1 DF, UNK
     Route: 048
  12. BECOZYME                           /00003501/ [Concomitant]
     Active Substance: CALCIUM PANTOTHENATE\NIACINAMIDE\PYRIDOXINE HYDROCHLORIDE\RIBOFLAVIN\THIAMINE HYDROCHLORIDE
     Indication: INSOMNIA
     Route: 065
  13. LEXOTANIL [Concomitant]
     Active Substance: BROMAZEPAM
     Indication: INSOMNIA
     Route: 065
  14. LAXOBERON [Concomitant]
     Active Substance: SODIUM PICOSULFATE
     Indication: ALCOHOLISM
     Route: 065
     Dates: start: 20171022
  15. DAFALGAN [Concomitant]
     Active Substance: ACETAMINOPHEN
     Indication: PAIN
     Dosage: 1 G, QD
     Route: 065
  16. RAMIPRIL. [Suspect]
     Active Substance: RAMIPRIL
     Indication: ATRIAL FIBRILLATION
     Dosage: 5 MG, QD
     Route: 048
  17. HEPARIN [Suspect]
     Active Substance: HEPARIN SODIUM
     Indication: HYPERTENSION
     Route: 065
  18. BENERVA [Concomitant]
     Active Substance: THIAMINE
     Indication: CONSTIPATION
     Route: 065
  19. LEXOTANIL [Concomitant]
     Active Substance: BROMAZEPAM
     Indication: CONSTIPATION
     Route: 065
  20. ANXIOLIT [Concomitant]
     Active Substance: OXAZEPAM
     Indication: PRODUCT USED FOR UNKNOWN INDICATION
     Dosage: 15 MG, QID
     Route: 065
     Dates: end: 20171012
  21. DAFALGAN [Concomitant]
     Active Substance: ACETAMINOPHEN
     Indication: PYREXIA
     Route: 065
  22. ATORVASTATIN [Suspect]
     Active Substance: ATORVASTATIN
     Indication: HYPERTENSION
     Dosage: 40 MG, QD
     Route: 048
     Dates: start: 20171011
  23. ATORVASTATIN [Suspect]
     Active Substance: ATORVASTATIN
     Indication: CEREBROVASCULAR ACCIDENT
     Dosage: 40 MG, QD
     Route: 048
     Dates: start: 20171012
  24. BENERVA [Concomitant]
     Active Substance: THIAMINE
     Indication: ALCOHOLISM
     Dosage: 1.5 MG, QD
     Route: 065
     Dates: start: 20171012
  25. BENERVA [Concomitant]
     Active Substance: THIAMINE
     Indication: INSOMNIA
     Route: 065
  26. FOLIC ACID. [Concomitant]
     Active Substance: FOLIC ACID
     Indication: INSOMNIA
     Route: 065
  27. COVERSUM [Suspect]
     Active Substance: PERINDOPRIL
     Indication: HYPERTENSION
     Route: 065
  28. LEXOTANIL [Concomitant]
     Active Substance: BROMAZEPAM
     Indication: ALCOHOLISM
     Dosage: 1.5 MG, QD
     Route: 065
     Dates: start: 20171017
  29. HEPARIN [Suspect]
     Active Substance: HEPARIN SODIUM
     Indication: CEREBROVASCULAR ACCIDENT
     Dosage: 25000 IU, QD
     Route: 041
     Dates: start: 20171012
  30. VITAMIN D3 [Concomitant]
     Active Substance: CHOLECALCIFEROL
     Indication: ALCOHOLISM
     Route: 065
     Dates: start: 20171020
  31. VITAMIN D3 [Concomitant]
     Active Substance: CHOLECALCIFEROL
     Indication: CONSTIPATION
     Route: 065
  32. LAXOBERON [Concomitant]
     Active Substance: SODIUM PICOSULFATE
     Indication: CONSTIPATION
     Route: 065
  33. TOBRAMYCINE                        /00304201/ [Concomitant]
     Indication: PRODUCT USED FOR UNKNOWN INDICATION
     Dosage: 2 GTT, QD
     Route: 047
     Dates: start: 20171014, end: 20171018
  34. PRADIF [Concomitant]
     Active Substance: TAMSULOSIN HYDROCHLORIDE
     Indication: URINARY INCONTINENCE
     Route: 065
  35. FOLIC ACID. [Concomitant]
     Active Substance: FOLIC ACID
     Indication: ALCOHOLISM
     Route: 065
     Dates: start: 20171012

REACTIONS (2)
  - Cholestatic liver injury [Recovering/Resolving]
  - Liver injury [Recovering/Resolving]

NARRATIVE: CASE EVENT DATE: 20171013
